FAERS Safety Report 7484764-9 (Version None)
Quarter: 2011Q2

REPORT INFORMATION
  Report Type: 
  Country: None (occurrence: None)
  Receive Date: 20110517
  Receipt Date: 20090501
  Transmission Date: 20111010
  Serious: Yes (Death, Other)
  Sender: FDA-Public Use
  Company Number: US-BAYER-2011-005986

PATIENT
  Age: 76 Year
  Sex: Male

DRUGS (1)
  1. TRASYLOL [Suspect]
     Indication: CORONARY ARTERY BYPASS
     Dosage: UNK
     Route: 042
     Dates: start: 20031022

REACTIONS (7)
  - PAIN [None]
  - ANXIETY [None]
  - INJURY [None]
  - STRESS [None]
  - EMOTIONAL DISTRESS [None]
  - PNEUMONIA [None]
  - RENAL FAILURE [None]
